FAERS Safety Report 13361134 (Version 3)
Quarter: 2021Q1

REPORT INFORMATION
  Report Type: Spontaneous
  Country: US (occurrence: US)
  Receive Date: 20170322
  Receipt Date: 20210309
  Transmission Date: 20210419
  Serious: Yes (Hospitalization)
  Sender: FDA-Public Use
  Company Number: US-BAUSCH-BL-2017-007328

PATIENT
  Age: 66 Year
  Sex: Female
  Weight: 85.26 kg

DRUGS (1)
  1. XIFAXAN [Suspect]
     Active Substance: RIFAXIMIN
     Indication: HEPATIC ENCEPHALOPATHY
     Route: 065
     Dates: start: 201606

REACTIONS (6)
  - Renal disorder [Unknown]
  - Product dose omission issue [Unknown]
  - Asthenia [Unknown]
  - Vomiting [Unknown]
  - Inability to afford medication [Unknown]
  - Hospitalisation [Unknown]

NARRATIVE: CASE EVENT DATE: 20210201
